FAERS Safety Report 18922518 (Version 1)
Quarter: 2021Q1

REPORT INFORMATION
  Report Type: Spontaneous
  Country: AU (occurrence: AU)
  Receive Date: 20210222
  Receipt Date: 20210222
  Transmission Date: 20210420
  Serious: Yes (Hospitalization, Other)
  Sender: FDA-Public Use
  Company Number: AU-MYLANLABS-2021M1010483

PATIENT
  Age: 62 Year
  Sex: Female

DRUGS (17)
  1. OXYCODONE [Suspect]
     Active Substance: OXYCODONE
     Dosage: 10 MILLIGRAM, ADMINISTERED 14 HOURS AFTER ADMISSION
     Route: 065
     Dates: start: 2017
  2. METHADONE [Suspect]
     Active Substance: METHADONE HYDROCHLORIDE
     Indication: BACK PAIN
     Dosage: 40 MILLIGRAM, INITIAL DOSE UNKNOWN; DOSE ESCALATED; 40MG DOSE ...
     Route: 065
     Dates: end: 2017
  3. OXYCODONE [Suspect]
     Active Substance: OXYCODONE
     Indication: BACK PAIN
     Dosage: RESUMED AGAIN AFTER DISCHARGE
     Route: 065
     Dates: end: 201403
  4. BUPRENORPHINE. [Suspect]
     Active Substance: BUPRENORPHINE
     Indication: BACK PAIN
     Dosage: UNK
     Route: 065
     Dates: start: 201410
  5. KETAMINE [Concomitant]
     Active Substance: KETAMINE
     Indication: PAIN
     Dosage: DOSE: 6 MG/HR INFUSION
     Route: 042
     Dates: start: 201403
  6. DIAZEPAM. [Suspect]
     Active Substance: DIAZEPAM
     Dosage: 10 MILLIGRAM, TID, THREE TIMES DAILY; ON ADMISSION IN 2017
     Route: 065
  7. BUPRENORPHINE. [Suspect]
     Active Substance: BUPRENORPHINE
     Indication: DRUG USE DISORDER
     Dosage: 4 MILLIGRAM, AT 30 HOURS AFTER ADMISSION
     Route: 060
     Dates: start: 2017, end: 2017
  8. METHADONE [Suspect]
     Active Substance: METHADONE HYDROCHLORIDE
     Indication: DRUG USE DISORDER
  9. OXYCODONE [Suspect]
     Active Substance: OXYCODONE
     Indication: DRUG USE DISORDER
     Dosage: UNK
     Route: 065
     Dates: start: 2014, end: 201410
  10. BUPRENORPHINE. [Suspect]
     Active Substance: BUPRENORPHINE
     Indication: BACK PAIN
     Dosage: DISCONTINUED IN 2014, SOON AFTER DISCHARGE
     Route: 060
     Dates: start: 201403
  11. CLONIDINE. [Concomitant]
     Active Substance: CLONIDINE
     Indication: PROPHYLAXIS
     Dosage: DOSAGE: AS REQUIRED, THREE TIMES A DAY (TOTAL DOSE: 300?600 UG/DAY)
     Route: 048
     Dates: start: 201403
  12. KETAMINE [Concomitant]
     Active Substance: KETAMINE
     Dosage: UNK, INFUSION
     Route: 042
     Dates: start: 201410
  13. BUPRENORPHINE. [Suspect]
     Active Substance: BUPRENORPHINE
     Indication: DRUG USE DISORDER
  14. CLONIDINE. [Concomitant]
     Active Substance: CLONIDINE
     Dosage: DOSAGE: TWICE A DAY (TOTAL DOSE: 100 UG/DAY)
     Route: 048
     Dates: start: 201410
  15. DIAZEPAM. [Suspect]
     Active Substance: DIAZEPAM
     Indication: ANXIETY
     Dosage: INITIAL DOSE UNKNOWN; DOSE ESCALATED
     Route: 065
  16. BUPRENORPHINE. [Suspect]
     Active Substance: BUPRENORPHINE
     Dosage: 2 MILLIGRAM, AT 32 AND 34 HOURS AFTER ADMISSION
     Route: 060
     Dates: start: 2017
  17. KETAMINE [Concomitant]
     Active Substance: KETAMINE
     Dosage: DOSE: 2MG/HR; INCREASED UP TO 24 MG/HR OVER 2 DAYS, INFUSION
     Route: 042
     Dates: start: 2017

REACTIONS (5)
  - Drug withdrawal syndrome [Recovering/Resolving]
  - Fall [Unknown]
  - Hyperaesthesia [Unknown]
  - Stress cardiomyopathy [Recovering/Resolving]
  - Injury [Unknown]

NARRATIVE: CASE EVENT DATE: 2014
